FAERS Safety Report 8937873 (Version 1)
Quarter: 2012Q4

REPORT INFORMATION
  Report Type: Spontaneous
  Country: US (occurrence: None)
  Receive Date: 20121128
  Receipt Date: 20121128
  Transmission Date: 20130627
  Serious: Yes (Hospitalization)
  Sender: FDA-Public Use
  Company Number: None

PATIENT
  Age: 27 Year
  Sex: Female
  Weight: 58.97 kg

DRUGS (1)
  1. MIRENA IUD [Suspect]

REACTIONS (3)
  - Medical device complication [None]
  - Uterine perforation [None]
  - Laparoscopic surgery [None]
